FAERS Safety Report 8262563-8 (Version None)
Quarter: 2012Q2

REPORT INFORMATION
  Report Type: 
  Country: None (occurrence: None)
  Receive Date: 20120405
  Receipt Date: 20120328
  Transmission Date: 20120825
  Serious: Yes (Hospitalization)
  Sender: FDA-Public Use
  Company Number: JP-JNJFOC-20120309097

PATIENT
  Age: 85 Year
  Sex: Female

DRUGS (4)
  1. ZOLPIDEM [Concomitant]
     Route: 048
  2. ARICEPT [Concomitant]
     Route: 048
  3. RISPERIDONE [Suspect]
     Indication: PRODUCT USED FOR UNKNOWN INDICATION
     Route: 048
     Dates: start: 20120225, end: 20120316
  4. MEMANTINE HYDROCHLORIDE [Concomitant]
     Route: 048

REACTIONS (1)
  - AKATHISIA [None]
